FAERS Safety Report 18956287 (Version 2)
Quarter: 2021Q2

REPORT INFORMATION
  Report Type: Spontaneous
  Country: US (occurrence: US)
  Receive Date: 20210302
  Receipt Date: 20210406
  Transmission Date: 20210717
  Serious: No
  Sender: FDA-Public Use
  Company Number: US-LUPIN PHARMACEUTICALS INC.-2021-02316

PATIENT
  Sex: Female

DRUGS (1)
  1. LISINOPRIL TABLETS USP, 40MG [Suspect]
     Active Substance: LISINOPRIL
     Indication: PRODUCT USED FOR UNKNOWN INDICATION
     Dosage: UNK
     Route: 065

REACTIONS (5)
  - Aspartate aminotransferase abnormal [Unknown]
  - Adverse drug reaction [Unknown]
  - Pancreatic enzymes abnormal [Unknown]
  - Drug chemical incompatibility [Unknown]
  - Alanine aminotransferase abnormal [Unknown]
